FAERS Safety Report 8207717-1 (Version None)
Quarter: 2012Q1

REPORT INFORMATION
  Report Type: 
  Country: None (occurrence: None)
  Receive Date: 20120314
  Receipt Date: 20120308
  Transmission Date: 20120608
  Serious: Yes (Life-Threatening, Hospitalization)
  Sender: FDA-Public Use
  Company Number: CA-CELGENEUS-028-21880-12030973

PATIENT
  Sex: Male
  Weight: 67.5 kg

DRUGS (7)
  1. FINASTERIDE [Concomitant]
     Dosage: 5 MILLIGRAM
     Route: 065
  2. TAMSULOSIN CR [Concomitant]
     Dosage: .4 MILLIGRAM
     Route: 065
  3. ENALAPRIL MALEATE [Concomitant]
     Dosage: 10 MILLIGRAM
     Route: 065
  4. REVLIMID [Suspect]
     Indication: MULTIPLE MYELOMA
     Dosage: 25 MILLIGRAM
     Route: 048
     Dates: start: 20110901
  5. DEXAMETHASONE [Concomitant]
     Dosage: 12 MILLIGRAM
     Route: 065
  6. DARBEPOETIN [Concomitant]
     Dosage: 150 MICROGRAM
     Route: 065
  7. OMEPRAZOLE [Concomitant]
     Dosage: 40 MILLIGRAM
     Route: 065

REACTIONS (1)
  - MYOCARDIAL INFARCTION [None]
